FAERS Safety Report 7698622-8 (Version None)
Quarter: 2011Q3

REPORT INFORMATION
  Report Type: 
  Country: None (occurrence: None)
  Receive Date: 20110818
  Receipt Date: 20110818
  Transmission Date: 20111222
  Serious: Yes (Hospitalization, Other)
  Sender: FDA-Public Use
  Company Number: None

PATIENT
  Age: 57 Year
  Sex: Female

DRUGS (5)
  1. IPRATROPIUM BROMIDE [Concomitant]
  2. INSULIN ASPART [Concomitant]
  3. LETAIRIS [Suspect]
     Indication: PULMONARY HYPERTENSION
     Dosage: LETAIRIS 5 MG DAILY ORALLY
     Route: 048
     Dates: start: 20101201
  4. SIMAVASTATIN [Concomitant]
  5. ASPIRIN [Concomitant]

REACTIONS (6)
  - PRESYNCOPE [None]
  - FATIGUE [None]
  - HYPOTENSION [None]
  - HAEMOGLOBIN DECREASED [None]
  - OCCULT BLOOD POSITIVE [None]
  - GASTRIC ULCER [None]
